FAERS Safety Report 5520154-3 (Version None)
Quarter: 2007Q4

REPORT INFORMATION
  Report Type: 
  Country: None (occurrence: None)
  Receive Date: 20071116
  Receipt Date: 20071113
  Transmission Date: 20080405
  Serious: Yes (Hospitalization)
  Sender: FDA-Public Use
  Company Number: US-BOEHRINGER INGELHEIM PHARMACEUTICALS, INC.-2006-BP-14916BP

PATIENT
  Sex: Female

DRUGS (3)
  1. MIRAPEX [Suspect]
     Indication: PARKINSON'S DISEASE
     Route: 048
     Dates: start: 20000101
  2. SYNTHROID [Suspect]
     Indication: THYROID DISORDER
  3. SELEGILINE HCL [Suspect]
     Indication: PARKINSON'S DISEASE

REACTIONS (2)
  - CARDIAC MURMUR [None]
  - HEART VALVE INCOMPETENCE [None]
